FAERS Safety Report 21004344 (Version 1)
Quarter: 2022Q2

REPORT INFORMATION
  Report Type: Spontaneous
  Country: US (occurrence: None)
  Receive Date: 20220624
  Receipt Date: 20220624
  Transmission Date: 20220721
  Serious: No
  Sender: FDA-Public Use
  Company Number: None

PATIENT
  Age: 70 Year
  Sex: Male

DRUGS (1)
  1. LOVENOX [Suspect]
     Active Substance: ENOXAPARIN SODIUM
     Dosage: OTHER FREQUENCY : OTHER;?
     Route: 058
     Dates: start: 202206

REACTIONS (2)
  - Cardiac disorder [None]
  - Asthenia [None]

NARRATIVE: CASE EVENT DATE: 20220624
